FAERS Safety Report 5797560-5 (Version None)
Quarter: 2008Q3

REPORT INFORMATION
  Report Type: 
  Country: None (occurrence: None)
  Receive Date: 20080702
  Receipt Date: 20080626
  Transmission Date: 20090109
  Serious: Yes (Life-Threatening)
  Sender: FDA-Public Use
  Company Number: JP-BAYER-200811123BYL

PATIENT
  Age: 35 Year
  Sex: Female
  Weight: 51 kg

DRUGS (1)
  1. MAGNEVIST [Suspect]
     Indication: NUCLEAR MAGNETIC RESONANCE IMAGING ABDOMINAL
     Dosage: TOTAL DAILY DOSE: 10 ML  UNIT DOSE: 10 ML
     Route: 042
     Dates: start: 20080602, end: 20080602

REACTIONS (4)
  - ANAPHYLACTOID SHOCK [None]
  - DYSPNOEA [None]
  - GENERALISED OEDEMA [None]
  - RASH GENERALISED [None]
